FAERS Safety Report 7374064-X (Version None)
Quarter: 2011Q1

REPORT INFORMATION
  Report Type: 
  Country: None (occurrence: None)
  Receive Date: 20110325
  Receipt Date: 20110317
  Transmission Date: 20110831
  Serious: Yes (Hospitalization)
  Sender: FDA-Public Use
  Company Number: US-ASTELLAS-2011US001124

PATIENT
  Sex: Male
  Weight: 53 kg

DRUGS (5)
  1. NORVASC [Concomitant]
     Indication: BLOOD PRESSURE
     Dosage: 5 MG, UID/QD
     Route: 048
  2. PROGRAF [Suspect]
     Indication: RENAL TRANSPLANT
     Dosage: 9 MG, BID
     Route: 048
     Dates: start: 20060421
  3. CLONIDINE [Concomitant]
     Indication: BLOOD PRESSURE
     Dosage: 0.3 MG, TID
     Route: 048
  4. PREDNISONE [Concomitant]
     Indication: RENAL TRANSPLANT
     Dosage: 5 MG, UID/QD
     Route: 048
     Dates: start: 20060421
  5. METOPROLOL [Concomitant]
     Indication: BLOOD PRESSURE
     Dosage: 100 MG, BID
     Route: 048

REACTIONS (2)
  - TREATMENT NONCOMPLIANCE [None]
  - KIDNEY TRANSPLANT REJECTION [None]
